FAERS Safety Report 7495187-0 (Version None)
Quarter: 2011Q2

REPORT INFORMATION
  Report Type: 
  Country: None (occurrence: None)
  Receive Date: 20110520
  Receipt Date: 20110513
  Transmission Date: 20111010
  Serious: Yes (Hospitalization, Other)
  Sender: FDA-Public Use
  Company Number: US-RB-023943-11

PATIENT
  Age: 41 Year
  Sex: Female
  Weight: 50 kg

DRUGS (4)
  1. SUBOXONE [Suspect]
     Dosage: SUBOXONE FILM
     Route: 060
     Dates: start: 20110101
  2. ATENOLOL [Concomitant]
     Indication: PALPITATIONS
     Route: 065
     Dates: start: 19900101
  3. SUBOXONE [Suspect]
     Indication: DRUG DEPENDENCE
     Dosage: SUBOXONE SUBLINGUAL FILM.
     Route: 060
     Dates: start: 20110301
  4. SYNTHROID [Concomitant]
     Indication: HYPOTHYROIDISM
     Route: 065
     Dates: start: 19900101

REACTIONS (7)
  - ANAEMIA [None]
  - CHEST PAIN [None]
  - LOSS OF CONSCIOUSNESS [None]
  - DECREASED APPETITE [None]
  - WEIGHT DECREASED [None]
  - OEDEMA PERIPHERAL [None]
  - DYSPNOEA [None]
